FAERS Safety Report 23307562 (Version 2)
Quarter: 2024Q1

REPORT INFORMATION
  Report Type: Spontaneous
  Country: US (occurrence: US)
  Receive Date: 20231218
  Receipt Date: 20240105
  Transmission Date: 20240410
  Serious: No
  Sender: FDA-Public Use
  Company Number: US-Calliditas-2023CAL01641

PATIENT
  Age: 52 Year
  Sex: Female
  Weight: 68 kg

DRUGS (8)
  1. TARPEYO [Suspect]
     Active Substance: BUDESONIDE
     Indication: IgA nephropathy
     Route: 048
     Dates: start: 20230228
  2. ATORVASTATIN [Concomitant]
     Active Substance: ATORVASTATIN
  3. TRIAMTERENE [Concomitant]
     Active Substance: TRIAMTERENE
  4. JARDIANCE [Concomitant]
     Active Substance: EMPAGLIFLOZIN
  5. VITAMIN D NOS [Concomitant]
     Active Substance: VITAMIN D NOS
  6. PREDNISONE [Concomitant]
     Active Substance: PREDNISONE
  7. PROBIOTICS NOS [Concomitant]
     Active Substance: PROBIOTICS NOS
  8. OMEGA-3 FATTY ACIDS [Concomitant]
     Active Substance: OMEGA-3 FATTY ACIDS

REACTIONS (1)
  - Hypertension [Not Recovered/Not Resolved]

NARRATIVE: CASE EVENT DATE: 20230315
